FAERS Safety Report 14606400 (Version 2)
Quarter: 2018Q1

REPORT INFORMATION
  Report Type: Report from Study
  Country: None (occurrence: US)
  Receive Date: 20180307
  Receipt Date: 20180315
  Transmission Date: 20180509
  Serious: Yes (Hospitalization, Other)
  Sender: FDA-Public Use
  Company Number: US-ABBVIE-18K-163-2276532-00

PATIENT
  Age: 54 Year
  Sex: Female
  Weight: 102.15 kg

DRUGS (2)
  1. HUMIRA [Suspect]
     Active Substance: ADALIMUMAB
     Indication: PSORIASIS
     Route: 058
     Dates: start: 2015, end: 20180206
  2. OTEZLA [Concomitant]
     Active Substance: APREMILAST
     Indication: PSORIASIS
     Dates: start: 201803

REACTIONS (16)
  - Dysuria [Recovered/Resolved]
  - Gastric ulcer [Recovered/Resolved]
  - Genital cyst [Recovered/Resolved]
  - Urinary retention [Recovered/Resolved]
  - Urinary incontinence [Recovered/Resolved]
  - Dehydration [Recovered/Resolved]
  - Acute kidney injury [Recovered/Resolved]
  - Multiple organ dysfunction syndrome [Unknown]
  - Feeding disorder [Recovered/Resolved]
  - Grip strength decreased [Recovered/Resolved]
  - Heart rate irregular [Recovering/Resolving]
  - Hypertension [Recovering/Resolving]
  - Pulmonary oedema [Recovering/Resolving]
  - Pneumonia [Recovering/Resolving]
  - Asthenia [Recovering/Resolving]
  - Gastric infection [Recovered/Resolved]

NARRATIVE: CASE EVENT DATE: 2016
